FAERS Safety Report 24226516 (Version 1)
Quarter: 2024Q3

REPORT INFORMATION
  Report Type: Report from Study
  Country: US (occurrence: None)
  Receive Date: 20240820
  Receipt Date: 20240820
  Transmission Date: 20241017
  Serious: Yes (Other)
  Sender: ASTRAZENECA
  Company Number: 2022A313385

PATIENT

DRUGS (1)
  1. CALQUENCE [Suspect]
     Active Substance: ACALABRUTINIB
     Dosage: DOSE UNKNWON
     Route: 048

REACTIONS (6)
  - Cardiotoxicity [Unknown]
  - Anaemia [Unknown]
  - Fatigue [Unknown]
  - Cytopenia [Unknown]
  - Hypertension [Unknown]
  - Oedema [Unknown]
